FAERS Safety Report 5639348-1 (Version None)
Quarter: 2008Q1

REPORT INFORMATION
  Report Type: 
  Country: None (occurrence: None)
  Receive Date: 20080131
  Receipt Date: 20071126
  Transmission Date: 20080703
  Serious: Yes (Hospitalization)
  Sender: FDA-Public Use
  Company Number: 163-21880-07111449

PATIENT
  Age: 69 Year
  Sex: Female

DRUGS (4)
  1. REVLIMID [Suspect]
     Indication: MULTIPLE MYELOMA
     Dosage: 25 MG, 1 IN 1 D, ORAL
     Route: 048
     Dates: start: 20070426, end: 20071101
  2. FAMVIR [Concomitant]
  3. AREDIA [Concomitant]
  4. PREDNISONE TAB [Concomitant]

REACTIONS (3)
  - DISEASE PROGRESSION [None]
  - FULL BLOOD COUNT ABNORMAL [None]
  - THROMBOCYTOPENIA [None]
